FAERS Safety Report 9643868 (Version 1)
Quarter: 2013Q4

REPORT INFORMATION
  Report Type: Spontaneous
  Country: US (occurrence: US)
  Receive Date: 20131024
  Receipt Date: 20131024
  Transmission Date: 20140711
  Serious: No
  Sender: FDA-Public Use
  Company Number: US-ASTRAZENECA-2013SE74745

PATIENT
  Age: 73 Year
  Sex: Female
  Weight: 66.7 kg

DRUGS (11)
  1. ATENOLOL [Suspect]
     Indication: CARDIAC DISORDER
     Route: 048
  2. ATACAND [Suspect]
     Indication: CARDIAC DISORDER
     Route: 048
     Dates: end: 2013
  3. ATACAND [Suspect]
     Indication: CARDIAC DISORDER
     Dosage: GENERIC
     Route: 048
     Dates: start: 2013
  4. NEXIUM EERD (DELAYED RELEASE) [Suspect]
     Indication: HIATUS HERNIA
     Route: 048
  5. CRESTOR [Suspect]
     Indication: BLOOD CHOLESTEROL ABNORMAL
     Route: 048
  6. ASPIRIN [Concomitant]
  7. SYNTHROID [Concomitant]
     Dosage: GENERIC
  8. SYNTHROID [Concomitant]
  9. CO Q 10 [Concomitant]
     Indication: SUPPLEMENTATION THERAPY
  10. NIASPAN [Concomitant]
     Indication: BLOOD CHOLESTEROL ABNORMAL
     Dates: end: 2012
  11. NIASPAN [Concomitant]
     Indication: BLOOD CHOLESTEROL ABNORMAL

REACTIONS (10)
  - Blood cholesterol abnormal [Unknown]
  - Hiatus hernia [Unknown]
  - Sluggishness [Unknown]
  - Pharyngeal disorder [Unknown]
  - Dyspepsia [Unknown]
  - Thyroid disorder [Unknown]
  - Muscle spasms [Unknown]
  - Laboratory test abnormal [Recovered/Resolved]
  - Intentional drug misuse [Not Recovered/Not Resolved]
  - Off label use [Recovered/Resolved]
